FAERS Safety Report 8241152-5 (Version None)
Quarter: 2012Q1

REPORT INFORMATION
  Report Type: 
  Country: None (occurrence: None)
  Receive Date: 20120328
  Receipt Date: 20120322
  Transmission Date: 20120608
  Serious: Yes (Hospitalization, Other)
  Sender: FDA-Public Use
  Company Number: JP-ABBOTT-11P-087-0724439-00

PATIENT
  Sex: Male
  Weight: 80 kg

DRUGS (13)
  1. MERCAPTOPURINE [Suspect]
     Indication: CROHN'S DISEASE
     Route: 048
     Dates: start: 20060901, end: 20110903
  2. SODIUM FERROUS CITRATE [Concomitant]
     Indication: IRON DEFICIENCY ANAEMIA
     Dates: start: 20060901
  3. LANSOPRAZOLE [Concomitant]
     Indication: ULCER
     Route: 048
  4. SULFASALAZINE [Concomitant]
     Indication: CROHN'S DISEASE
     Route: 048
     Dates: start: 20060901
  5. MESALAMINE [Concomitant]
     Route: 048
  6. HUMIRA [Suspect]
     Dates: start: 20110702
  7. MESALAMINE [Concomitant]
     Indication: CROHN'S DISEASE
     Route: 048
     Dates: start: 20060901
  8. DIFLUCORTOLONE VALERATE/LIDOCAINE [Concomitant]
     Indication: CROHN'S DISEASE
     Route: 061
  9. HUMIRA [Suspect]
     Indication: CROHN'S DISEASE
     Dates: start: 20110422, end: 20110422
  10. METRONIDAZOLE [Concomitant]
     Indication: CROHN'S DISEASE
     Route: 048
     Dates: start: 20060901
  11. HUMIRA [Suspect]
     Dates: start: 20110623, end: 20110623
  12. MERCAPTOPURINE [Suspect]
     Dates: start: 20110903
  13. SODIUM FERROUS CITRATE [Concomitant]
     Dates: end: 20110903

REACTIONS (7)
  - LACUNAR INFARCTION [None]
  - TRANSIENT ISCHAEMIC ATTACK [None]
  - HEMIPARESIS [None]
  - HEADACHE [None]
  - DYSLALIA [None]
  - AMYLASE INCREASED [None]
  - HERPES OPHTHALMIC [None]
